FAERS Safety Report 13775212 (Version 1)
Quarter: 2017Q3

REPORT INFORMATION
  Report Type: Report from Study
  Country: US (occurrence: US)
  Receive Date: 20170721
  Receipt Date: 20170721
  Transmission Date: 20171127
  Serious: Yes (Hospitalization)
  Sender: FDA-Public Use
  Company Number: US-PFIZER INC-2017314444

PATIENT
  Age: 38 Year
  Sex: Female
  Weight: 52.3 kg

DRUGS (2)
  1. AZD5363 [Suspect]
     Active Substance: INVESTIGATIONAL PRODUCT
     Dosage: 480 MG, BID FOR 4 DAYS ON AND 3 DAYS OFF EACH WEEK
     Route: 048
     Dates: start: 20170210
  2. GABAPENTIN. [Suspect]
     Active Substance: GABAPENTIN
     Dosage: UNK

REACTIONS (2)
  - Facial nerve disorder [Recovering/Resolving]
  - Pyrexia [Recovered/Resolved]

NARRATIVE: CASE EVENT DATE: 20170517
